FAERS Safety Report 6983391-7 (Version None)
Quarter: 2010Q3

REPORT INFORMATION
  Report Type: 
  Country: None (occurrence: None)
  Receive Date: 20100914
  Receipt Date: 20100914
  Transmission Date: 20110219
  Serious: No
  Sender: FDA-Public Use
  Company Number: None

PATIENT
  Age: 85 Year
  Sex: Male
  Weight: 77.1115 kg

DRUGS (1)
  1. CIPRO [Suspect]
     Indication: EAR INFECTION
     Dates: start: 20100508, end: 20100513

REACTIONS (1)
  - TENDON RUPTURE [None]
